FAERS Safety Report 9693386 (Version 1)
Quarter: 2013Q4

REPORT INFORMATION
  Report Type: Spontaneous
  Country: US (occurrence: None)
  Receive Date: 20131114
  Receipt Date: 20131114
  Transmission Date: 20140711
  Serious: Yes (Other)
  Sender: FDA-Public Use
  Company Number: 13-04622

PATIENT
  Age: 5 Year
  Sex: Male

DRUGS (1)
  1. ALBUTEROL SULFATE [Suspect]
     Indication: ASTHMA
     Dosage: 1 VIAL PO Q4-6H 054
     Dates: start: 201309, end: 201310

REACTIONS (2)
  - Pneumonia [None]
  - Malaise [None]
